FAERS Safety Report 10077392 (Version 2)
Quarter: 2014Q2

REPORT INFORMATION
  Report Type: Spontaneous
  Country: US (occurrence: US)
  Receive Date: 20140414
  Receipt Date: 20140414
  Transmission Date: 20141212
  Serious: No
  Sender: FDA-Public Use
  Company Number: US-BANPHARM-20131462

PATIENT
  Age: 79 Year
  Sex: Male
  Weight: 79.38 kg

DRUGS (2)
  1. ALEVE LIQUID GELS 220 MG [Suspect]
     Indication: PAIN
     Dosage: 1 DF, Q12H
     Route: 048
     Dates: start: 2012
  2. SYNTHROID [Concomitant]

REACTIONS (1)
  - Blood count abnormal [Recovered/Resolved]
